FAERS Safety Report 11159453 (Version 1)
Quarter: 2015Q2

REPORT INFORMATION
  Report Type: Spontaneous
  Country: US (occurrence: US)
  Receive Date: 20150603
  Receipt Date: 20150603
  Transmission Date: 20150821
  Serious: Yes (Hospitalization, Other)
  Sender: FDA-Public Use
  Company Number: US-GLAXOSMITHKLINE-US2015GSK076126

PATIENT
  Age: 53 Year
  Sex: Female

DRUGS (15)
  1. HALOPERIDOL. [Suspect]
     Active Substance: HALOPERIDOL
     Dosage: 5 MG, QD
  2. CLOZAPINE. [Suspect]
     Active Substance: CLOZAPINE
     Dosage: 125 MG, QD, AT NIGHT
  3. MELOXICAM. [Suspect]
     Active Substance: MELOXICAM
  4. METFORMIN [Suspect]
     Active Substance: METFORMIN HYDROCHLORIDE
  5. PANTOPRAZOLE [Suspect]
     Active Substance: PANTOPRAZOLE SODIUM
  6. GABAPENTIN. [Suspect]
     Active Substance: GABAPENTIN
     Dosage: 300 MG, TID
  7. PRAVASTATIN [Suspect]
     Active Substance: PRAVASTATIN\PRAVASTATIN SODIUM
  8. LAMOTRIGINE. [Suspect]
     Active Substance: LAMOTRIGINE
     Dosage: 200 MG, QD
  9. ALBUTEROL. [Suspect]
     Active Substance: ALBUTEROL
  10. CHOLECALCIFEROL [Suspect]
     Active Substance: CHOLECALCIFEROL
  11. ASPIRIN. [Suspect]
     Active Substance: ASPIRIN
  12. BENZTROPINE [Suspect]
     Active Substance: BENZTROPINE
     Dosage: 2 MG, BID
  13. MONTELUKAST [Suspect]
     Active Substance: MONTELUKAST SODIUM
  14. DOCUSATE + SENNA [Suspect]
     Active Substance: DOCUSATE SODIUM\SENNA LEAF
  15. FERROUS SULFATE [Suspect]
     Active Substance: FERROUS SULFATE\FERROUS SULFATE, DRIED

REACTIONS (5)
  - Confusional state [Recovered/Resolved]
  - Dysarthria [Unknown]
  - Delirium [Recovered/Resolved]
  - Gait disturbance [Recovered/Resolved]
  - Depressed level of consciousness [Unknown]
